FAERS Safety Report 19888901 (Version 1)
Quarter: 2021Q3

REPORT INFORMATION
  Report Type: Spontaneous
  Country: MY (occurrence: MY)
  Receive Date: 20210927
  Receipt Date: 20210927
  Transmission Date: 20211014
  Serious: Yes (Death, Life-Threatening, Hospitalization, Other)
  Sender: FDA-Public Use
  Company Number: MY-BAYER-2021A215554

PATIENT
  Age: 18 Year
  Sex: Male

DRUGS (6)
  1. AMIKACIN. [Concomitant]
     Active Substance: AMIKACIN
     Indication: MYCOBACTERIAL INFECTION
  2. ETOPOSIDE. [Concomitant]
     Active Substance: ETOPOSIDE
     Indication: B PRECURSOR TYPE ACUTE LEUKAEMIA
     Dosage: VP?16 50 MG/M2 X 5 DAYS
  3. CIPROBAY 400/200 MG/ML [Suspect]
     Active Substance: CIPROFLOXACIN HYDROCHLORIDE
     Indication: MYCOBACTERIAL INFECTION
     Dosage: 400 MG, BID
     Route: 042
  4. CIPROBAY 400/200 MG/ML [Suspect]
     Active Substance: CIPROFLOXACIN HYDROCHLORIDE
     Indication: DEVICE RELATED INFECTION
  5. AMIKACIN. [Concomitant]
     Active Substance: AMIKACIN
     Indication: DEVICE RELATED INFECTION
  6. CYTARABINE. [Concomitant]
     Active Substance: CYTARABINE
     Indication: B PRECURSOR TYPE ACUTE LEUKAEMIA
     Dosage: ARA?C 75 MG/M2 X 5 DAYS

REACTIONS (2)
  - Drug resistance [Fatal]
  - Drug-induced liver injury [Not Recovered/Not Resolved]
